FAERS Safety Report 6767878-8 (Version None)
Quarter: 2010Q2

REPORT INFORMATION
  Report Type: 
  Country: None (occurrence: None)
  Receive Date: 20100614
  Receipt Date: 20100609
  Transmission Date: 20101027
  Serious: Yes (Other)
  Sender: FDA-Public Use
  Company Number: JP-SANOFI-AVENTIS-200513707JP

PATIENT
  Age: 54 Year
  Sex: Female

DRUGS (6)
  1. LEFLUNOMIDE [Suspect]
     Indication: RHEUMATOID ARTHRITIS
     Route: 048
     Dates: start: 20050121, end: 20050203
  2. QUESTRAN [Suspect]
     Indication: DRUG DETOXIFICATION
     Route: 048
     Dates: start: 20050214, end: 20050315
  3. PREDONINE [Concomitant]
     Indication: RHEUMATOID ARTHRITIS
     Dosage: DOSE AS USED: 1 TABLET
     Route: 048
  4. CIMETIDINE [Concomitant]
     Indication: GASTRITIS
     Dosage: DOSE AS USED: 1 TABLET
     Route: 048
  5. URSO 250 [Concomitant]
     Indication: HEPATIC STEATOSIS
     Dosage: DOSE AS USED: 6 TABLETS
     Route: 048
  6. RHEUMATREX [Concomitant]
     Indication: RHEUMATOID ARTHRITIS
     Dosage: DOSE AS USED: 6 MG/WEEK
     Dates: start: 20030726, end: 20041118

REACTIONS (3)
  - ALANINE AMINOTRANSFERASE INCREASED [None]
  - ASPARTATE AMINOTRANSFERASE INCREASED [None]
  - HEPATIC FUNCTION ABNORMAL [None]
